FAERS Safety Report 16496084 (Version 2)
Quarter: 2019Q3

REPORT INFORMATION
  Report Type: Report from Study
  Country: US (occurrence: US)
  Receive Date: 20190628
  Receipt Date: 20190711
  Transmission Date: 20191004
  Serious: Yes (Hospitalization)
  Sender: FDA-Public Use
  Company Number: US-GILEAD-2019-0415917

PATIENT
  Age: 62 Year
  Sex: Female
  Weight: 91.16 kg

DRUGS (1)
  1. AMBRISENTAN [Suspect]
     Active Substance: AMBRISENTAN
     Indication: PULMONARY HYPERTENSION
     Dosage: 10 MG
     Route: 065

REACTIONS (3)
  - Back disorder [Unknown]
  - Joint injury [Unknown]
  - Fall [Unknown]
